FAERS Safety Report 6714617-2 (Version None)
Quarter: 2010Q2

REPORT INFORMATION
  Report Type: 
  Country: None (occurrence: None)
  Receive Date: 20100503
  Receipt Date: 20100415
  Transmission Date: 20101027
  Serious: Yes (Life-Threatening, Hospitalization, Disabling, Other)
  Sender: FDA-Public Use
  Company Number: GB-ACCORD-004762

PATIENT
  Age: 55 Year
  Sex: Female

DRUGS (3)
  1. SIMVASTATIN [Suspect]
     Indication: BLOOD CHOLESTEROL INCREASED
     Dosage: ORAL
     Route: 048
     Dates: start: 20031001, end: 20100405
  2. BEZAFIBRATE(BEZAFIBRATE) [Suspect]
     Indication: BLOOD CHOLESTEROL INCREASED
     Dosage: ORAL
     Route: 048
     Dates: start: 20090401, end: 20090501
  3. NIACIN [Suspect]
     Dosage: ORAL
     Route: 048
     Dates: start: 20090501, end: 20090801

REACTIONS (5)
  - AUTOIMMUNE HEPATITIS [None]
  - CHOLELITHIASIS [None]
  - DRUG INTERACTION [None]
  - RENAL FAILURE ACUTE [None]
  - RHABDOMYOLYSIS [None]
